FAERS Safety Report 21744008 (Version 1)
Quarter: 2022Q4

REPORT INFORMATION
  Report Type: Spontaneous
  Country: FR (occurrence: FR)
  Receive Date: 20221217
  Receipt Date: 20221217
  Transmission Date: 20230112
  Serious: Yes (Other)
  Sender: FDA-Public Use
  Company Number: FR-BAXTER-2022BAX026219

PATIENT
  Age: 77 Year
  Sex: Male

DRUGS (4)
  1. DEXAMETHASONE [Suspect]
     Active Substance: DEXAMETHASONE
     Indication: Product used for unknown indication
     Dosage: UNK (40 MG/DOSE 1 DOSE(S)/WEEK 4 WEEK(S)/CYCLE, TREATMENT LINE 2, DURATION 8.5 MONTHS)
     Route: 065
     Dates: end: 20190412
  2. CYCLOPHOSPHAMIDE [Suspect]
     Active Substance: CYCLOPHOSPHAMIDE
     Indication: Product used for unknown indication
     Dosage: UNK (300 MG/DOSE 1 DOSE(S)/WEEK 3 WEEK(S)/CYCLE, TREATMENT LINE 2, DURATION 8.5 MONTHS)
     Route: 065
     Dates: end: 20190412
  3. DARATUMUMAB [Suspect]
     Active Substance: DARATUMUMAB
     Indication: Product used for unknown indication
     Dosage: UNK (1100 MG/DOSE 1 DOSE(S)/WEEK 4 WEEK(S)/CYCLE, TREATMENT LINE 2, DURATION 8.5 MONTHS)
     Route: 065
     Dates: end: 20190412
  4. POMALIDOMIDE [Suspect]
     Active Substance: POMALIDOMIDE
     Indication: Product used for unknown indication
     Dosage: UNK (2 MG/DOSE 7 DOSE(S)/WEEK 3 WEEK(S)/CYCLE, TREATMENT LINE 2, DURATION 8.5 MONTHS)
     Route: 065
     Dates: end: 20190412

REACTIONS (2)
  - Neutrophil count decreased [Recovering/Resolving]
  - Diabetic foot [Unknown]

NARRATIVE: CASE EVENT DATE: 20190412
